FAERS Safety Report 16667292 (Version 4)
Quarter: 2019Q4

REPORT INFORMATION
  Report Type: Spontaneous
  Country: US (occurrence: US)
  Receive Date: 20190805
  Receipt Date: 20191014
  Transmission Date: 20200122
  Serious: Yes (Hospitalization, Other)
  Sender: FDA-Public Use
  Company Number: US-PFIZER INC-2019278327

PATIENT
  Age: 73 Year
  Sex: Female

DRUGS (20)
  1. SEROQUEL [Concomitant]
     Active Substance: QUETIAPINE FUMARATE
     Dosage: 300 MG, 1X/DAY(AT BEDTIME)
  2. LOVENOX [LEVOFLOXACIN] [Concomitant]
     Active Substance: LEVOFLOXACIN
     Dosage: UNK (80 MG /0.8 ML)
  3. TOPROL XL [Concomitant]
     Active Substance: METOPROLOL SUCCINATE
     Dosage: 100 MG, 1X/DAY(EVERY AT BED TIME)
  4. TOPIRAMATE. [Concomitant]
     Active Substance: TOPIRAMATE
     Dosage: 50 MG, UNK
     Dates: start: 200808
  5. LORAZEPAM. [Concomitant]
     Active Substance: LORAZEPAM
     Dosage: 1 MG, UNK (AS DIRECTED)
  6. ROSUVASTATIN. [Concomitant]
     Active Substance: ROSUVASTATIN
     Dosage: 10 MG, 1X/DAY (AT BEDTIME)
  7. TOPAMAX [Concomitant]
     Active Substance: TOPIRAMATE
     Dosage: 25 MG, DAILY
  8. NITROGLYCERIN. [Concomitant]
     Active Substance: NITROGLYCERIN
     Indication: CHEST PAIN
     Dosage: 0.4 MG, AS NEEDED
  9. METOPROLOL SUCCINATE. [Concomitant]
     Active Substance: METOPROLOL SUCCINATE
     Dosage: 50 MG, DAILY
  10. ESTRADIOL. [Concomitant]
     Active Substance: ESTRADIOL
     Dosage: 1 MG, DAILY
  11. COUMADIN [Concomitant]
     Active Substance: WARFARIN SODIUM
     Dosage: 5 MG, DAILY
  12. DOFETILIDE. [Concomitant]
     Active Substance: DOFETILIDE
     Dosage: 125 IU, 2X/DAY
  13. TOPROL XL [Concomitant]
     Active Substance: METOPROLOL SUCCINATE
     Dosage: 100 MG, 1X/DAY
  14. WARFARIN [Concomitant]
     Active Substance: WARFARIN
     Dosage: 5 MG, DAILY
     Dates: start: 200307
  15. TIKOSYN [Suspect]
     Active Substance: DOFETILIDE
     Indication: ATRIAL FIBRILLATION
     Dosage: 125 UG, 2X/DAY
     Dates: start: 201105
  16. AMLODIPINE [Concomitant]
     Active Substance: AMLODIPINE BESYLATE
     Dosage: 5 MG, 1X/DAY
     Dates: start: 201702
  17. WARFARIN [Concomitant]
     Active Substance: WARFARIN
     Dosage: 5 MG, DAILY(2 IN TABLET AS DIRECTED)
  18. TIKOSYN [Suspect]
     Active Substance: DOFETILIDE
     Dosage: UNK, 1X/DAY
  19. METOPROLOL. [Concomitant]
     Active Substance: METOPROLOL
     Dosage: 100 MG, UNK
     Dates: start: 200308
  20. TOPAMAX [Concomitant]
     Active Substance: TOPIRAMATE
     Dosage: 100 MG, 1X/DAY

REACTIONS (32)
  - Extra dose administered [Unknown]
  - Balance disorder [Unknown]
  - Migraine [Unknown]
  - Asthenia [Unknown]
  - Musculoskeletal pain [Unknown]
  - Joint range of motion decreased [Unknown]
  - Emotional distress [Unknown]
  - Weight fluctuation [Unknown]
  - Hyperlipidaemia [Unknown]
  - Headache [Unknown]
  - Malaise [Unknown]
  - Wheezing [Unknown]
  - Pyrexia [Unknown]
  - Thirst [Unknown]
  - Myalgia [Unknown]
  - Muscular weakness [Unknown]
  - Intentional product use issue [Unknown]
  - Transient ischaemic attack [Unknown]
  - Syncope [Unknown]
  - Cerebrovascular disorder [Unknown]
  - Pain in extremity [Unknown]
  - Chills [Unknown]
  - Neck pain [Unknown]
  - Hyperaesthesia [Unknown]
  - Oesophageal motility disorder [Unknown]
  - Eating disorder [Unknown]
  - Paraesthesia [Unknown]
  - Procedural pain [Unknown]
  - Product prescribing error [Unknown]
  - Dysphagia [Unknown]
  - Fatigue [Unknown]
  - Hypoaesthesia [Unknown]

NARRATIVE: CASE EVENT DATE: 20181106
